FAERS Safety Report 5515133-6 (Version None)
Quarter: 2007Q4

REPORT INFORMATION
  Report Type: 
  Country: None (occurrence: None)
  Receive Date: 20071113
  Receipt Date: 20070112
  Transmission Date: 20080405
  Serious: No
  Sender: FDA-Public Use
  Company Number: A0635526A

PATIENT
  Sex: Male

DRUGS (2)
  1. COREG [Suspect]
     Dosage: 12.5MG VARIABLE DOSE
     Route: 048
  2. LASIX [Concomitant]

REACTIONS (6)
  - COUGH [None]
  - DECREASED APPETITE [None]
  - FLUID RETENTION [None]
  - HYPOTENSION [None]
  - INSOMNIA [None]
  - WEIGHT DECREASED [None]
